FAERS Safety Report 9586886 (Version 1)
Quarter: 2013Q4

REPORT INFORMATION
  Report Type: Spontaneous
  Country: US (occurrence: US)
  Receive Date: 20131003
  Receipt Date: 20131003
  Transmission Date: 20140711
  Serious: Yes (Other)
  Sender: FDA-Public Use
  Company Number: PHEH2013US020456

PATIENT
  Sex: Male

DRUGS (1)
  1. GILENYA [Suspect]
     Route: 048
     Dates: start: 201205

REACTIONS (1)
  - Renal cell carcinoma [Unknown]
